FAERS Safety Report 14340024 (Version 2)
Quarter: 2018Q1

REPORT INFORMATION
  Report Type: Spontaneous
  Country: DE (occurrence: DE)
  Receive Date: 20171231
  Receipt Date: 20180119
  Transmission Date: 20180509
  Serious: Yes (Hospitalization)
  Sender: FDA-Public Use
  Company Number: DE-TEVA-2017-DE-838661

PATIENT
  Age: 30 Year
  Sex: Male

DRUGS (4)
  1. AMPICILLIN/SULBACTAM [Suspect]
     Active Substance: AMPICILLIN SODIUM\SULBACTAM SODIUM
     Indication: INFECTION
     Route: 042
  2. AMOXICILLIN. [Suspect]
     Active Substance: AMOXICILLIN
     Indication: PERIODONTITIS
     Route: 048
  3. CIPROFLOXACIN. [Suspect]
     Active Substance: CIPROFLOXACIN
     Indication: PERIODONTITIS
     Dosage: 1 GRAM DAILY;
     Route: 065
  4. BENZYLPENICILLIN [Suspect]
     Active Substance: PENICILLIN G
     Indication: INFECTION
     Route: 042

REACTIONS (18)
  - Staphylococcal infection [Recovered/Resolved]
  - Tachypnoea [Recovering/Resolving]
  - Enterococcal infection [Recovered/Resolved]
  - Staphylococcal infection [Unknown]
  - Proteinuria [Unknown]
  - Acute generalised exanthematous pustulosis [Recovering/Resolving]
  - Conjunctivitis [Unknown]
  - Tachycardia [Recovering/Resolving]
  - Oedema peripheral [Recovering/Resolving]
  - Propionibacterium infection [Recovered/Resolved]
  - Dyspnoea [Recovering/Resolving]
  - Weight decreased [Unknown]
  - Generalised oedema [Recovering/Resolving]
  - Hypervolaemia [Unknown]
  - Oliguria [Unknown]
  - Hypophagia [Unknown]
  - Hypotension [Unknown]
  - Sepsis [Unknown]
